FAERS Safety Report 6576912-X (Version None)
Quarter: 2010Q1

REPORT INFORMATION
  Report Type: 
  Country: None (occurrence: None)
  Receive Date: 20100210
  Receipt Date: 20100201
  Transmission Date: 20100710
  Serious: Yes (Hospitalization, Other)
  Sender: FDA-Public Use
  Company Number: B0632144A

PATIENT
  Sex: Female
  Weight: 23 kg

DRUGS (17)
  1. ZANAMIVIR [Suspect]
     Indication: H1N1 INFLUENZA
     Route: 042
     Dates: start: 20091215, end: 20091224
  2. VANCOMYCIN [Suspect]
  3. THEOPHYLLINE [Concomitant]
  4. FUROSEMIDE [Concomitant]
  5. HEPARIN [Concomitant]
     Dosage: 600UGK PER DAY
  6. SODIUM NITROPRUSSIDE [Concomitant]
  7. SODIUM THIOSULPHATE [Concomitant]
  8. FENTANYL-100 [Concomitant]
  9. MIDAZOLAM HCL [Concomitant]
  10. VECURONIUM BROMIDE [Concomitant]
  11. INSULIN [Concomitant]
  12. NORADRENALINE [Concomitant]
  13. OMEPRAZOLE [Concomitant]
  14. PROTAMINE SULFATE [Concomitant]
  15. NOVOSEVEN [Concomitant]
  16. FIBRINOGEN [Concomitant]
  17. AMPICILLIN AND SULBACTAM [Concomitant]

REACTIONS (3)
  - CARDIOTOXICITY [None]
  - LIVER DISORDER [None]
  - RENAL FAILURE [None]
